FAERS Safety Report 6405107-5 (Version None)
Quarter: 2009Q4

REPORT INFORMATION
  Report Type: 
  Country: None (occurrence: None)
  Receive Date: 20091019
  Receipt Date: 20091009
  Transmission Date: 20100525
  Serious: Yes (Hospitalization)
  Sender: FDA-Public Use
  Company Number: GB-ROCHE-661734

PATIENT
  Sex: Male
  Weight: 67.9 kg

DRUGS (1)
  1. CAPECITABINE [Suspect]
     Indication: COLON CANCER
     Dosage: TOTAL DIALY DOSE: 2000 MG/M^2. DOSE TAKEN AS PER PROTOCOL.
     Route: 048
     Dates: start: 20090424

REACTIONS (3)
  - DIARRHOEA [None]
  - HYPOTHERMIA [None]
  - NAUSEA [None]
